FAERS Safety Report 4362003-5 (Version None)
Quarter: 2004Q2

REPORT INFORMATION
  Report Type: 
  Country: None (occurrence: None)
  Receive Date: 20040521
  Receipt Date: 20040213
  Transmission Date: 20050107
  Serious: No
  Sender: FDA-Public Use
  Company Number: US-GLAXOSMITHKLINE-A0498153A

PATIENT
  Age: 29 Year
  Sex: Female

DRUGS (6)
  1. WELLBUTRIN XL [Suspect]
     Indication: DEPRESSION
     Dosage: 300MG PER DAY
     Route: 048
     Dates: start: 20031101
  2. LAMICTAL [Concomitant]
  3. LORAZEPAM [Concomitant]
  4. ASPIRIN [Concomitant]
  5. EXCEDRIN (MIGRAINE) [Concomitant]
  6. PEPTO-BISMOL [Concomitant]

REACTIONS (2)
  - HEADACHE [None]
  - NAUSEA [None]
